FAERS Safety Report 7652682-9 (Version None)
Quarter: 2011Q3

REPORT INFORMATION
  Report Type: 
  Country: None (occurrence: None)
  Receive Date: 20110803
  Receipt Date: 20110722
  Transmission Date: 20111222
  Serious: Yes (Other)
  Sender: FDA-Public Use
  Company Number: FR-EISAI INC-E3810-04825-SPO-FR

PATIENT
  Sex: Male

DRUGS (5)
  1. ARIXTRA [Concomitant]
  2. RABEPRAZOLE SODIUM [Suspect]
     Route: 048
  3. ATARAX [Concomitant]
  4. TEGRETOL [Concomitant]
  5. ABIRATERONE [Suspect]
     Indication: PROSTATE CANCER
     Dosage: UNKNOWN

REACTIONS (1)
  - HYPOKALAEMIA [None]
